FAERS Safety Report 8545541 (Version 3)
Quarter: 2014Q1

REPORT INFORMATION
  Report Type: Spontaneous
  Country: US (occurrence: US)
  Receive Date: 20120503
  Receipt Date: 20140304
  Transmission Date: 20141002
  Serious: Yes (Other)
  Sender: FDA-Public Use
  Company Number: US-PFIZER INC-2012105890

PATIENT
  Age: 44 Year
  Sex: Female
  Weight: 80.73 kg

DRUGS (16)
  1. LYRICA [Suspect]
     Indication: FIBROMYALGIA
     Dosage: 75 MG, 2X/DAY
     Route: 048
  2. LYRICA [Suspect]
     Dosage: 75MG TWO TIMES A DAY DURING DAY TIME AND 150MG AT BED TIME
     Route: 048
     Dates: start: 201109
  3. LYRICA [Suspect]
     Dosage: 150 MG (BY TAKING TWO CAPSULES OF 75MG IN MORNING AND ONE CAPSULE OF 150MG AT NIGHT), 2X/DAY
     Route: 048
     Dates: start: 201109
  4. LYRICA [Suspect]
     Dosage: 150 MG (BY TAKING TWO CAPSULES OF 75MG IN MORNING AND ONE CAPSULE OF 150MG AT NIGHT), 2X/DAY
     Route: 048
  5. CELEXA [Concomitant]
     Dosage: 20 MG, 1X/DAY
  6. HYDROCHLOROTHIAZIDE [Concomitant]
     Indication: HYPERTENSION
     Dosage: 12.5 MG, UNK
  7. XANAX [Concomitant]
     Dosage: UNK
  8. AMBIEN [Concomitant]
     Dosage: UNK
  9. ESTRADIOL [Concomitant]
     Dosage: UNK
  10. FLEXERIL [Concomitant]
     Dosage: UNK, AS NEEDED
  11. FLEXERIL [Concomitant]
     Dosage: UNK
  12. LASIX [Concomitant]
     Dosage: UNK
  13. TRAMADOL [Concomitant]
     Dosage: UNK
  14. POTASSIUM [Concomitant]
     Dosage: UNK
  15. ZOLPIDEM [Concomitant]
     Dosage: 10 MG, 1X/DAY
  16. VITAMIN B12 [Concomitant]
     Dosage: 1000 MG, 1X/DAY

REACTIONS (9)
  - Drug dependence [Unknown]
  - Activities of daily living impaired [Unknown]
  - Drug ineffective [Unknown]
  - Weight increased [Unknown]
  - Paraesthesia [Unknown]
  - Hypoaesthesia [Unknown]
  - Increased appetite [Unknown]
  - Food craving [Unknown]
  - Pain [Unknown]
